FAERS Safety Report 8469607-9 (Version None)
Quarter: 2012Q2

REPORT INFORMATION
  Report Type: 
  Country: None (occurrence: None)
  Receive Date: 20120626
  Receipt Date: 20120620
  Transmission Date: 20120825
  Serious: Yes (Hospitalization, Other)
  Sender: FDA-Public Use
  Company Number: FI-PFIZER INC-2012148161

PATIENT
  Age: 66 Year
  Sex: Female

DRUGS (4)
  1. SULFASALAZINE [Suspect]
     Indication: SERONEGATIVE ARTHRITIS
     Dosage: UNK
     Dates: start: 20120101, end: 20120501
  2. CALCIUM CARBONATE [Concomitant]
     Dosage: UNK
  3. PREDNISOLONE [Suspect]
     Indication: SERONEGATIVE ARTHRITIS
     Dosage: 10 MG, UNK
     Dates: start: 20120101
  4. PANTOPRAZOLE [Concomitant]
     Dosage: UNK

REACTIONS (8)
  - RASH MORBILLIFORM [None]
  - HEPATIC ENZYME INCREASED [None]
  - NEUTROPENIA [None]
  - LEUKOPENIA [None]
  - SEPSIS [None]
  - SWELLING FACE [None]
  - ACUTE TONSILLITIS [None]
  - NAUSEA [None]
